FAERS Safety Report 8319960-1 (Version None)
Quarter: 2012Q2

REPORT INFORMATION
  Report Type: 
  Country: None (occurrence: None)
  Receive Date: 20120427
  Receipt Date: 20120423
  Transmission Date: 20120825
  Serious: Yes (Hospitalization, Other)
  Sender: FDA-Public Use
  Company Number: US-AMGEN-USASP2012025698

PATIENT
  Sex: Female

DRUGS (3)
  1. SENSIPAR [Suspect]
     Indication: HYPERPARATHYROIDISM SECONDARY
  2. SENSIPAR [Suspect]
     Dosage: 90 MG, QD
  3. SENSIPAR [Suspect]
     Dosage: 30 MG, QD

REACTIONS (2)
  - HYPERCALCAEMIA [None]
  - HOSPITALISATION [None]
